FAERS Safety Report 8205662-9 (Version None)
Quarter: 2012Q1

REPORT INFORMATION
  Report Type: 
  Country: None (occurrence: None)
  Receive Date: 20120313
  Receipt Date: 20120309
  Transmission Date: 20120608
  Serious: Yes (Death, Hospitalization)
  Sender: FDA-Public Use
  Company Number: DK-BAXTER-2012BH007065

PATIENT
  Age: 79 Year
  Sex: Female

DRUGS (5)
  1. VINCRISTINE SULFATE [Suspect]
     Indication: DIFFUSE LARGE B-CELL LYMPHOMA
     Dosage: DOSIS: DOSERES EFTER KURSKEMA HVER 3. UGE
     Route: 042
     Dates: start: 20110125, end: 20110501
  2. PREDNISOLONE [Suspect]
     Indication: DIFFUSE LARGE B-CELL LYMPHOMA
     Dosage: DOSIS: DOSERES EFTER KURSKEMA HVER 3. UGE,
     Route: 042
     Dates: start: 20110125, end: 20110501
  3. MABTHERA [Suspect]
     Indication: DIFFUSE LARGE B-CELL LYMPHOMA
     Dosage: DOSIS: DOSERES EFTER KURSKEMA HVER 3. UGE
     Route: 042
     Dates: start: 20110125, end: 20110501
  4. CYCLOPHOSPHAMIDE [Suspect]
     Indication: DIFFUSE LARGE B-CELL LYMPHOMA
     Dosage: DOSIS: DOSERES EFTER KURSKEMA HVER 3. UGE
     Route: 042
     Dates: start: 20110125, end: 20110501
  5. ETOPOSIDE [Suspect]
     Indication: DIFFUSE LARGE B-CELL LYMPHOMA
     Dosage: DOSIS: DOSERES EFTER KURSKEMA HVER 3. UGE
     Route: 042
     Dates: start: 20110125, end: 20110501

REACTIONS (2)
  - HEPATIC FAILURE [None]
  - HEPATITIS B [None]
